FAERS Safety Report 17327432 (Version 1)
Quarter: 2020Q1

REPORT INFORMATION
  Report Type: Report from Study
  Country: US (occurrence: US)
  Receive Date: 20200127
  Receipt Date: 20200127
  Transmission Date: 20200409
  Serious: Yes (Hospitalization, Other)
  Sender: FDA-Public Use
  Company Number: US-GILEAD-2019-0444249

PATIENT
  Age: 79 Year
  Sex: Female
  Weight: 47.62 kg

DRUGS (12)
  1. TYLENOL [Concomitant]
     Active Substance: ACETAMINOPHEN
  2. ROBITUSSIN AC [CODEINE PHOSPHATE;GUAIFENESIN] [Concomitant]
  3. PRILOSEC [Concomitant]
     Active Substance: OMEPRAZOLE MAGNESIUM
  4. OXYGEN. [Concomitant]
     Active Substance: OXYGEN
  5. BYSTOLIC [Concomitant]
     Active Substance: NEBIVOLOL HYDROCHLORIDE
  6. NATURAL BALANCE TEARS [Concomitant]
     Active Substance: HYPROMELLOSE 2910 (3 MPA.S)
  7. DELTASONE [PREDNISOLONE] [Concomitant]
  8. B COMPLEX PLUS VITAMIN C [Concomitant]
  9. PHOSLO [Concomitant]
     Active Substance: CALCIUM ACETATE
  10. CIPRO [Concomitant]
     Active Substance: CIPROFLOXACIN HYDROCHLORIDE
  11. EMLA [Concomitant]
     Active Substance: LIDOCAINE\PRILOCAINE
  12. AMBRISENTAN [Suspect]
     Active Substance: AMBRISENTAN
     Indication: PULMONARY HYPERTENSION
     Dosage: 10 MG, QD
     Route: 048
     Dates: start: 20110802

REACTIONS (4)
  - Lung neoplasm malignant [Unknown]
  - Sepsis [Unknown]
  - Thinking abnormal [Unknown]
  - Urinary tract infection [Unknown]
